FAERS Safety Report 7128619-8 (Version None)
Quarter: 2010Q4

REPORT INFORMATION
  Report Type: 
  Country: None (occurrence: None)
  Receive Date: 20101130
  Receipt Date: 20101103
  Transmission Date: 20110411
  Serious: Yes (Hospitalization)
  Sender: FDA-Public Use
  Company Number: PHHO2010US16608

PATIENT
  Sex: Female

DRUGS (16)
  1. STI571/CGP57148B T35717+TAB [Suspect]
     Indication: PULMONARY ARTERIAL HYPERTENSION
     Dosage: 200 MG, QD
     Route: 048
     Dates: start: 20101022
  2. OXYCODONE [Concomitant]
  3. POTASSIUM CHLORIDE [Concomitant]
  4. FUROSEMIDE [Concomitant]
  5. METHYLPHENIDATE HCL [Concomitant]
  6. OLOPATADINE [Concomitant]
  7. VENLAFAXINE HYDROCHLORIDE [Concomitant]
  8. ALBUTEROL SULFATE [Concomitant]
  9. MULTI-VITAMINS [Concomitant]
  10. DOCUSATE SODIUM [Concomitant]
  11. QUETIAPINE FUMARATE [Concomitant]
  12. ZOLPIDEM TARTRATE [Concomitant]
  13. GABAPENTIN [Concomitant]
  14. SILDENAFIL CITRATE [Concomitant]
  15. TREPROSTINOL [Concomitant]
  16. ALBUTEROL [Concomitant]

REACTIONS (3)
  - BREAST PAIN [None]
  - BREAST SWELLING [None]
  - MASTITIS [None]
